FAERS Safety Report 24679065 (Version 1)
Quarter: 2024Q4

REPORT INFORMATION
  Report Type: Spontaneous
  Country: CA (occurrence: CA)
  Receive Date: 20241129
  Receipt Date: 20241129
  Transmission Date: 20250115
  Serious: Yes (Other)
  Sender: MERCK
  Company Number: CA-009507513-2411CAN010008

PATIENT
  Age: 67 Year
  Sex: Male
  Weight: 81.8 kg

DRUGS (12)
  1. KEYTRUDA [Suspect]
     Active Substance: PEMBROLIZUMAB
  2. PADCEV [Suspect]
     Active Substance: ENFORTUMAB VEDOTIN\ENFORTUMAB VEDOTIN-EJFV
     Dosage: 102 MG, D1 AND D8
     Route: 042
     Dates: start: 20241001
  3. PADCEV [Suspect]
     Active Substance: ENFORTUMAB VEDOTIN\ENFORTUMAB VEDOTIN-EJFV
     Dosage: 102 MG, D1 AND D8
     Route: 042
     Dates: start: 20241008
  4. PADCEV [Suspect]
     Active Substance: ENFORTUMAB VEDOTIN\ENFORTUMAB VEDOTIN-EJFV
     Dosage: 98 MG, DAY 1 AND DAY 8 IN 21 DAY CYCLE
     Route: 042
     Dates: start: 20241022
  5. PADCEV [Suspect]
     Active Substance: ENFORTUMAB VEDOTIN\ENFORTUMAB VEDOTIN-EJFV
     Dosage: 74.4 MG, D1 AND D8 OF 21 DAY CYCLE (PREVIOUS DOSE 78 MG)
     Route: 042
     Dates: start: 20241104
  6. ACETAMINOPHEN [Concomitant]
     Active Substance: ACETAMINOPHEN
     Route: 065
  7. DEXAMETHASONE [Concomitant]
     Active Substance: DEXAMETHASONE
     Route: 065
  8. HYDROMORPHONE [Concomitant]
     Active Substance: HYDROMORPHONE
     Route: 065
  9. NAPROXEN [Concomitant]
     Active Substance: NAPROXEN
     Route: 065
  10. PANTOPRAZOLE [Concomitant]
     Active Substance: PANTOPRAZOLE
     Route: 065
  11. PREGABALIN [Concomitant]
     Active Substance: PREGABALIN
     Route: 065
  12. SULFAMETHOXAZOLE\TRIMETHOPRIM [Concomitant]
     Active Substance: SULFAMETHOXAZOLE\TRIMETHOPRIM
     Route: 065

REACTIONS (4)
  - Neuropathy peripheral [Unknown]
  - Fatigue [Unknown]
  - Dry skin [Unknown]
  - Oedema peripheral [Unknown]

NARRATIVE: CASE EVENT DATE: 20241001
